FAERS Safety Report 20023916 (Version 7)
Quarter: 2022Q3

REPORT INFORMATION
  Report Type: Report from Study
  Country: CN (occurrence: None)
  Receive Date: 20211102
  Receipt Date: 20220830
  Transmission Date: 20221027
  Serious: Yes (Death, Life-Threatening, Hospitalization)
  Sender: FDA-Public Use
  Company Number: CN-ROCHE-2944911

PATIENT
  Age: 51 Year
  Sex: Male
  Weight: 85 kg

DRUGS (13)
  1. ATEZOLIZUMAB [Suspect]
     Active Substance: ATEZOLIZUMAB
     Indication: Non-small cell lung cancer stage IV
     Dosage: ON 26/SEP/2021, HE RECEIVED MOST RECENT DOSE OF BLINDED ATEZOLIZUMAB PRIOR TO ONSET OF SERIOUS ADVER
     Route: 041
     Dates: start: 20200828
  2. CARBOPLATIN [Suspect]
     Active Substance: CARBOPLATIN
     Indication: Non-small cell lung cancer stage IV
     Dosage: ON 03/NOV/2020, HE RECEIVED MOST RECENT DOSE OF CARBOPLATIN (775 MG) PRIOR TO ONSET OF SERIOUS ADVER
     Route: 042
     Dates: start: 20200828
  3. BEVACIZUMAB [Suspect]
     Active Substance: BEVACIZUMAB
     Indication: Non-small cell lung cancer stage IV
     Dosage: ON 26/SEP/2021, HE RECEIVED MOST RECENT DOSE OF BEVACIZUMAB (1230 MG) PRIOR TO ONSET OF SERIOUS ADVE
     Route: 042
     Dates: start: 20200828
  4. PEMETREXED [Suspect]
     Active Substance: PEMETREXED
     Indication: Non-small cell lung cancer stage IV
     Dosage: ON 26/SEP/2021, HE RECEIVED MOST RECENT DOSE OF PEMETREXED (1000 MG) PRIOR TO ONSET OF SERIOUS ADVER
     Route: 042
     Dates: start: 20200828
  5. VALSARTAN [Concomitant]
     Active Substance: VALSARTAN
     Dates: start: 2017
  6. FOLIC ACID [Concomitant]
     Active Substance: FOLIC ACID
     Dates: start: 20200820
  7. LEUCOGEN [Concomitant]
     Active Substance: LEUCOGEN
     Dates: start: 20201011
  8. HERBALS\DIAMMONIUM GLYCYRRHIZINATE [Concomitant]
     Active Substance: HERBALS\DIAMMONIUM GLYCYRRHIZINATE
     Dates: start: 20201120
  9. HERBALS\DIAMMONIUM GLYCYRRHIZINATE [Concomitant]
     Active Substance: HERBALS\DIAMMONIUM GLYCYRRHIZINATE
     Dates: start: 20201215
  10. TROPISETRON HYDROCHLORIDE [Concomitant]
     Active Substance: TROPISETRON HYDROCHLORIDE
     Dates: start: 20210926, end: 20210926
  11. DEXAMETHASONE ACETATE [Concomitant]
     Active Substance: DEXAMETHASONE ACETATE
     Route: 048
     Dates: start: 20210925, end: 20210925
  12. ONDANSETRON HYDROCHLORIDE [Concomitant]
     Active Substance: ONDANSETRON HYDROCHLORIDE
     Dates: start: 20210926, end: 20210926
  13. MEROPENEM [Concomitant]
     Active Substance: MEROPENEM
     Dates: start: 202111, end: 202111

REACTIONS (2)
  - Hepatic failure [Fatal]
  - Platelet count decreased [Not Recovered/Not Resolved]

NARRATIVE: CASE EVENT DATE: 20211019
